FAERS Safety Report 6190161-9 (Version None)
Quarter: 2009Q2

REPORT INFORMATION
  Report Type: 
  Country: None (occurrence: None)
  Receive Date: 20090514
  Receipt Date: 20090511
  Transmission Date: 20091009
  Serious: Yes (Death, Life-Threatening, Hospitalization)
  Sender: FDA-Public Use
  Company Number: DE-BAYER-200915905GPV

PATIENT
  Age: 61 Year
  Sex: Female
  Weight: 94 kg

DRUGS (8)
  1. FLUDARABINE PHOSPHATE [Suspect]
     Indication: CHRONIC LYMPHOCYTIC LEUKAEMIA
     Route: 042
     Dates: start: 20081128, end: 20090227
  2. RITUXIMAB [Suspect]
     Indication: CHRONIC LYMPHOCYTIC LEUKAEMIA
     Route: 042
     Dates: start: 20081127, end: 20090201
  3. RITUXIMAB [Suspect]
     Dosage: DOSE DECREASED
     Route: 042
     Dates: start: 20090202, end: 20090225
  4. CYCLOPHOSPHAMIDE [Suspect]
     Indication: CHRONIC LYMPHOCYTIC LEUKAEMIA
     Route: 042
     Dates: start: 20081128, end: 20090227
  5. ASPIRIN [Concomitant]
     Indication: DRUG USE FOR UNKNOWN INDICATION
     Dates: start: 20090309, end: 20090310
  6. THYRONAJOD [Concomitant]
     Indication: DRUG USE FOR UNKNOWN INDICATION
     Dates: start: 20090309, end: 20090310
  7. BISOPROLOL FUMARATE [Concomitant]
     Indication: DRUG USE FOR UNKNOWN INDICATION
     Dates: start: 20090309, end: 20090310
  8. PANTOZOL [Concomitant]
     Indication: DRUG USE FOR UNKNOWN INDICATION
     Dates: start: 20090309, end: 20090310

REACTIONS (4)
  - FEBRILE NEUTROPENIA [None]
  - NEUTROPENIC COLITIS [None]
  - RENAL FAILURE ACUTE [None]
  - SEPSIS [None]
